FAERS Safety Report 4312812-3 (Version None)
Quarter: 2004Q1

REPORT INFORMATION
  Report Type: 
  Country: None (occurrence: None)
  Receive Date: 20040304
  Receipt Date: 20040220
  Transmission Date: 20041129
  Serious: Yes (Other)
  Sender: FDA-Public Use
  Company Number: S03-FRA-03949-01

PATIENT
  Age: 82 Year
  Sex: Female

DRUGS (2)
  1. EBIXA (MEMANTINE) [Suspect]
     Indication: DEMENTIA ALZHEIMER'S TYPE
     Dates: start: 20030101
  2. DONEPEZOL (DONEPEZIL HYDROCHLORIDE) [Concomitant]

REACTIONS (3)
  - BACILLUS INFECTION [None]
  - CARBOHYDRATE ANTIGEN 125 INCREASED [None]
  - PLEURAL EFFUSION [None]
